FAERS Safety Report 4745418-2 (Version None)
Quarter: 2005Q3

REPORT INFORMATION
  Report Type: 
  Country: None (occurrence: None)
  Receive Date: 20050815
  Receipt Date: 20050804
  Transmission Date: 20060218
  Serious: Yes (Other)
  Sender: FDA-Public Use
  Company Number: PHRM2005FR02254

PATIENT
  Age: 76 Year
  Sex: Female

DRUGS (3)
  1. VOLTAREN [Suspect]
     Indication: ARTHRALGIA
     Dosage: 75 MG, ONCE/SINGLE
     Route: 048
     Dates: start: 20050803, end: 20050803
  2. DAFLON [Concomitant]
     Route: 048
  3. PARACETAMOL [Concomitant]
     Route: 048

REACTIONS (7)
  - BURNING SENSATION [None]
  - FACE OEDEMA [None]
  - FALL [None]
  - LOSS OF CONSCIOUSNESS [None]
  - MALAISE [None]
  - PRURITUS [None]
  - URTICARIA GENERALISED [None]
